FAERS Safety Report 20819351 (Version 1)
Quarter: 2022Q2

REPORT INFORMATION
  Report Type: Spontaneous
  Country: US (occurrence: None)
  Receive Date: 20220511
  Receipt Date: 20220511
  Transmission Date: 20220720
  Serious: Yes (Disabling, Other)
  Sender: FDA-Public Use
  Company Number: None

PATIENT
  Age: 35 Year
  Sex: Female
  Weight: 83.25 kg

DRUGS (1)
  1. OCREVUS [Suspect]
     Active Substance: OCRELIZUMAB
     Indication: Multiple sclerosis
     Dates: start: 20220106, end: 20220120

REACTIONS (9)
  - Hypertension [None]
  - Chest pain [None]
  - Dyspnoea [None]
  - Hypervolaemia [None]
  - Cardiac flutter [None]
  - Muscular weakness [None]
  - Muscular weakness [None]
  - Arthralgia [None]
  - Brain natriuretic peptide increased [None]

NARRATIVE: CASE EVENT DATE: 20220120
